FAERS Safety Report 13228389 (Version 1)
Quarter: 2017Q1

REPORT INFORMATION
  Report Type: Spontaneous
  Country: US (occurrence: US)
  Receive Date: 20170213
  Receipt Date: 20170213
  Transmission Date: 20170428
  Serious: No
  Sender: FDA-Public Use
  Company Number: US-ROCHE-1848860

PATIENT
  Sex: Male
  Weight: 86.26 kg

DRUGS (1)
  1. ALECENSA [Suspect]
     Active Substance: ALECTINIB HYDROCHLORIDE
     Indication: PRODUCT USED FOR UNKNOWN INDICATION
     Route: 048
     Dates: start: 20160908

REACTIONS (4)
  - Constipation [Unknown]
  - Fatigue [Unknown]
  - Bone pain [Unknown]
  - Pain [Unknown]
